FAERS Safety Report 22130000 (Version 1)
Quarter: 2023Q1

REPORT INFORMATION
  Report Type: Report from Study
  Country: US (occurrence: US)
  Receive Date: 20230323
  Receipt Date: 20230323
  Transmission Date: 20230418
  Serious: Yes (Death, Hospitalization)
  Sender: FDA-Public Use
  Company Number: US-TEVA-2021-US-1946164

PATIENT
  Age: 63 Year
  Sex: Male

DRUGS (2)
  1. BOSENTAN [Suspect]
     Active Substance: BOSENTAN
     Indication: Pulmonary arterial hypertension
     Dosage: 250 MILLIGRAM DAILY;
     Route: 048
     Dates: start: 20190606, end: 20230110
  2. UPTRAVI [Suspect]
     Active Substance: SELEXIPAG
     Indication: Pulmonary arterial hypertension
     Route: 065

REACTIONS (9)
  - Respiratory distress [Fatal]
  - Cough [Fatal]
  - Hypoxia [Fatal]
  - Pulmonary oedema [Fatal]
  - SARS-CoV-2 test positive [Fatal]
  - Hypotension [Fatal]
  - Septic shock [Fatal]
  - Streptococcal bacteraemia [Fatal]
  - Hospitalisation [Unknown]

NARRATIVE: CASE EVENT DATE: 20210718
